FAERS Safety Report 12352654 (Version 1)
Quarter: 2016Q2

REPORT INFORMATION
  Report Type: Spontaneous
  Country: IT (occurrence: IT)
  Receive Date: 20160510
  Receipt Date: 20160510
  Transmission Date: 20160815
  Serious: Yes (Life-Threatening, Other)
  Sender: FDA-Public Use
  Company Number: IT-WATSON-2016-09492

PATIENT
  Age: 23 Year
  Sex: Male

DRUGS (4)
  1. PREDNISONE (UNKNOWN) [Suspect]
     Active Substance: PREDNISONE
     Indication: BRONCHOPULMONARY ASPERGILLOSIS ALLERGIC
     Dosage: 1 MG/KG, DAILY
     Route: 048
  2. ITRACONAZOLE (UNKNOWN) [Suspect]
     Active Substance: ITRACONAZOLE
     Indication: BRONCHOPULMONARY ASPERGILLOSIS ALLERGIC
     Dosage: 200 MG, BID
     Route: 048
  3. AMPHOTERICIN B DEOXYCHOLATE [Concomitant]
     Active Substance: AMPHOTERICIN B
     Indication: BRONCHOPULMONARY ASPERGILLOSIS ALLERGIC
     Dosage: 1 MG/KG, DAILY
     Route: 065
  4. VORICONAZOLE. [Concomitant]
     Active Substance: VORICONAZOLE
     Indication: BRONCHOPULMONARY ASPERGILLOSIS ALLERGIC
     Dosage: 200 MG, BID
     Route: 048

REACTIONS (5)
  - Osteoporosis [Unknown]
  - Cushingoid [Unknown]
  - Skin striae [Unknown]
  - Acne [Unknown]
  - Drug ineffective [Unknown]
